FAERS Safety Report 9510171 (Version 1)
Quarter: 2013Q3

REPORT INFORMATION
  Report Type: Spontaneous
  Country: US (occurrence: US)
  Receive Date: 20130909
  Receipt Date: 20130909
  Transmission Date: 20140515
  Serious: No
  Sender: FDA-Public Use
  Company Number: US-BRISTOL-MYERS SQUIBB COMPANY-18724583

PATIENT
  Age: 28 Year
  Sex: Male
  Weight: 113.38 kg

DRUGS (2)
  1. ABILIFY TABS 30 MG [Suspect]
     Indication: SCHIZOPHRENIA
     Dosage: STARTED AT LOW DOSE IN 2001 THEN INCREASED TO 30MG,LAST DOSE-20MG:26MAR13
     Dates: start: 2001
  2. LITHIUM [Concomitant]

REACTIONS (1)
  - Drug withdrawal syndrome [Unknown]
